FAERS Safety Report 8208730-0 (Version None)
Quarter: 2012Q1

REPORT INFORMATION
  Report Type: 
  Country: None (occurrence: None)
  Receive Date: 20120314
  Receipt Date: 20120306
  Transmission Date: 20120608
  Serious: Yes (Other)
  Sender: FDA-Public Use
  Company Number: US-BAYER-2011-112928

PATIENT
  Age: 44 Year
  Sex: Female
  Weight: 54.422 kg

DRUGS (7)
  1. YASMIN [Suspect]
     Dosage: UNK
     Dates: start: 20091001, end: 20091112
  2. YAZ [Suspect]
     Dosage: UNK
     Dates: start: 20091001, end: 20091112
  3. DROSPIRENONE AND ETHINYL ESTRADIOL [Suspect]
     Dosage: UNK
     Dates: start: 20091001, end: 20091112
  4. NAPROXEN [Concomitant]
     Dosage: 500 MG, UNK
  5. HERBALS NOS W/MINERALS NOS/VITAMINS NOS [Concomitant]
  6. VALTREX [Concomitant]
     Dosage: UNK UNK, PRN
  7. CHLORHEXIDINE GLUCONATE [Concomitant]
     Dosage: 0.12 %, UNK
     Route: 048

REACTIONS (6)
  - INJURY [None]
  - GENERAL PHYSICAL HEALTH DETERIORATION [None]
  - DEEP VEIN THROMBOSIS [None]
  - PAIN [None]
  - ANXIETY [None]
  - EMOTIONAL DISTRESS [None]
